FAERS Safety Report 5909921-1 (Version None)
Quarter: 2008Q4

REPORT INFORMATION
  Report Type: 
  Country: None (occurrence: None)
  Receive Date: 20081002
  Receipt Date: 20080926
  Transmission Date: 20090506
  Serious: Yes (Hospitalization)
  Sender: FDA-Public Use
  Company Number: 20085426

PATIENT
  Sex: Female

DRUGS (2)
  1. LIORESAL [Suspect]
     Indication: MUSCLE SPASTICITY
     Dosage: 0.07478 MG, DAILY, INTRATHECAL
     Route: 037
     Dates: start: 20080401
  2. DILAUDID [Concomitant]

REACTIONS (17)
  - ANXIETY [None]
  - BLOOD POTASSIUM DECREASED [None]
  - BLOOD PRESSURE ABNORMAL [None]
  - BLOOD PRESSURE FLUCTUATION [None]
  - DEPRESSION [None]
  - DEVICE RELATED INFECTION [None]
  - EMOTIONAL DISTRESS [None]
  - HYPOAESTHESIA [None]
  - HYPOTENSION [None]
  - LOSS OF CONSCIOUSNESS [None]
  - MUSCULAR WEAKNESS [None]
  - OEDEMA PERIPHERAL [None]
  - PAIN [None]
  - SKIN DISCOLOURATION [None]
  - SUICIDAL IDEATION [None]
  - URINARY RETENTION [None]
  - WITHDRAWAL SYNDROME [None]
